FAERS Safety Report 5594059-6 (Version None)
Quarter: 2008Q1

REPORT INFORMATION
  Report Type: 
  Country: None (occurrence: None)
  Receive Date: 20080116
  Receipt Date: 20080110
  Transmission Date: 20080703
  Serious: Yes (Death, Other)
  Sender: FDA-Public Use
  Company Number: US-PFIZER INC-2008003168

PATIENT
  Age: 36 Year

DRUGS (3)
  1. GEODON [Suspect]
     Indication: PSYCHOTIC DISORDER
     Route: 030
  2. GEODON [Suspect]
     Indication: AGITATION
  3. ALL OTHER THERAPEUTIC PRODUCTS [Concomitant]

REACTIONS (1)
  - GENERAL PHYSICAL HEALTH DETERIORATION [None]
